FAERS Safety Report 8106026 (Version 3)
Quarter: 2013Q1

REPORT INFORMATION
  Report Type: Report from Study
  Country: DE (occurrence: DE)
  Receive Date: 20110825
  Receipt Date: 20130211
  Transmission Date: 20140127
  Serious: Yes (Hospitalization)
  Sender: FDA-Public Use
  Company Number: DE-SANOFI-AVENTIS-2011SA051866

PATIENT
  Age: 68 Year
  Sex: Male
  Weight: 69 kg

DRUGS (10)
  1. ELOXATIN [Suspect]
     Indication: RECTAL CANCER
     Route: 042
     Dates: start: 20110228, end: 20110228
  2. ELOXATIN [Suspect]
     Indication: RECTAL CANCER
     Route: 042
     Dates: start: 20110721, end: 20110721
  3. XELODA [Suspect]
     Indication: RECTAL CANCER
     Route: 048
     Dates: start: 20110228
  4. XELODA [Suspect]
     Indication: RECTAL CANCER
     Route: 048
     Dates: end: 20110721
  5. THERAPEUTIC RADIOPHARMACEUTICALS [Suspect]
     Indication: RECTAL CANCER
     Dosage: D1-33 1.8 GY WITHOUT WEEKENDS+OPTIONAL BOOST, 45 GY TOTAL
     Dates: start: 20110228, end: 20110406
  6. ALL OTHER NON-THERAPEUTIC PRODUCTS [Suspect]
     Indication: RECTAL CANCER
     Dates: start: 20110519, end: 20110519
  7. URAPIDIL [Concomitant]
     Indication: HYPERTENSION
     Route: 048
     Dates: start: 2000, end: 20110725
  8. CARVEDILOL [Concomitant]
     Indication: HYPERTENSION
     Route: 048
     Dates: start: 2000, end: 20110725
  9. BEZAFIBRATE [Concomitant]
     Indication: HYPERLIPIDAEMIA
     Route: 048
     Dates: start: 2000, end: 20110725
  10. SIMVASTATIN [Concomitant]
     Indication: HYPERLIPIDAEMIA
     Route: 048
     Dates: start: 20110728

REACTIONS (3)
  - Arrhythmia [Recovered/Resolved]
  - Dehydration [Recovered/Resolved]
  - Renal failure [Recovered/Resolved with Sequelae]
